FAERS Safety Report 14774024 (Version 3)
Quarter: 2018Q2

REPORT INFORMATION
  Report Type: Report from Study
  Country: US (occurrence: US)
  Receive Date: 20180418
  Receipt Date: 20180504
  Transmission Date: 20180711
  Serious: Yes (Hospitalization, Other)
  Sender: FDA-Public Use
  Company Number: US-BAYER-2018-022323

PATIENT
  Age: 60 Year
  Sex: Female

DRUGS (2)
  1. STIVARGA [Suspect]
     Active Substance: REGORAFENIB
     Indication: COLORECTAL CANCER METASTATIC
     Dosage: 160 MG, QD(3 WEEKS ON/1 WEEK OFF)
     Route: 048
     Dates: start: 20180116, end: 20180208
  2. STIVARGA [Suspect]
     Active Substance: REGORAFENIB
     Indication: COLORECTAL CANCER METASTATIC
     Dosage: 80 MG, QD(3 WEEKS ON/1 WEEK OFF)
     Route: 048
     Dates: start: 20180228, end: 20180403

REACTIONS (12)
  - Dyspnoea exertional [Recovering/Resolving]
  - Fatigue [Recovering/Resolving]
  - Serum ferritin decreased [Not Recovered/Not Resolved]
  - Decreased activity [Recovering/Resolving]
  - Gastrooesophageal reflux disease [Not Recovered/Not Resolved]
  - Bone marrow failure [Recovering/Resolving]
  - Blood count abnormal [Recovering/Resolving]
  - Anaemia [Not Recovered/Not Resolved]
  - Exercise tolerance decreased [Recovering/Resolving]
  - Epistaxis [Recovered/Resolved]
  - Pericardial effusion [Recovering/Resolving]
  - Drug ineffective [None]

NARRATIVE: CASE EVENT DATE: 2018
